FAERS Safety Report 8515045-X (Version None)
Quarter: 2012Q3

REPORT INFORMATION
  Report Type: 
  Country: None (occurrence: None)
  Receive Date: 20120717
  Receipt Date: 20120702
  Transmission Date: 20120928
  Serious: Yes (Death, Hospitalization)
  Sender: FDA-Public Use
  Company Number: GB-WATSON-2012-11748

PATIENT
  Age: 59 Year
  Sex: Male
  Weight: 95 kg

DRUGS (12)
  1. DOXAZOSIN MESYLATE [Suspect]
     Indication: PRODUCT USED FOR UNKNOWN INDICATION
     Dosage: UNK
     Route: 065
  2. PRAVASTATIN [Concomitant]
     Indication: PRODUCT USED FOR UNKNOWN INDICATION
     Dosage: UNK
     Route: 065
  3. EXENATIDE [Suspect]
     Indication: PRODUCT USED FOR UNKNOWN INDICATION
     Dosage: UNK
     Route: 065
  4. ENALAPRIL MALEATE [Concomitant]
     Indication: PRODUCT USED FOR UNKNOWN INDICATION
     Dosage: UNK
     Route: 065
  5. GLICLAZIDE [Concomitant]
     Indication: PRODUCT USED FOR UNKNOWN INDICATION
     Dosage: UNK
     Route: 065
  6. AMLODIPINE [Concomitant]
     Indication: PRODUCT USED FOR UNKNOWN INDICATION
     Dosage: UNK
     Route: 065
  7. ASPIRIN [Concomitant]
     Indication: PRODUCT USED FOR UNKNOWN INDICATION
     Dosage: UNK
     Route: 065
  8. METFORMIN HYDROCHLORIDE [Concomitant]
     Indication: TYPE 2 DIABETES MELLITUS
     Dosage: UNK
     Route: 065
     Dates: start: 19960901
  9. ANTIBIOTICS [Concomitant]
     Indication: PRODUCT USED FOR UNKNOWN INDICATION
     Dosage: UNK
     Route: 065
  10. CIPROFIBRATE [Concomitant]
     Indication: PRODUCT USED FOR UNKNOWN INDICATION
     Dosage: UNK
     Route: 065
  11. ACETAMINOPHEN AND CODEINE PHOSPHATE [Concomitant]
     Indication: PRODUCT USED FOR UNKNOWN INDICATION
     Dosage: UNK
     Route: 065
  12. AVANDIA [Suspect]
     Indication: TYPE 2 DIABETES MELLITUS
     Dosage: UNK
     Route: 065
     Dates: start: 20070801

REACTIONS (39)
  - DIABETIC EYE DISEASE [None]
  - LEFT VENTRICULAR HYPERTROPHY [None]
  - BRONCHOPNEUMONIA [None]
  - PENILE SWELLING [None]
  - MALAISE [None]
  - NAUSEA [None]
  - HYPERTENSION [None]
  - VOMITING [None]
  - RENAL FAILURE [None]
  - MACULAR OEDEMA [None]
  - CHRONIC OBSTRUCTIVE PULMONARY DISEASE [None]
  - NEPHROTIC SYNDROME [None]
  - LIVER FUNCTION TEST ABNORMAL [None]
  - DYSLIPIDAEMIA [None]
  - CARDIOMEGALY [None]
  - HYPOXIA [None]
  - CARDIAC FAILURE CONGESTIVE [None]
  - CARDIAC DISORDER [None]
  - COUGH [None]
  - LOWER RESPIRATORY TRACT INFECTION [None]
  - CARDIOPULMONARY FAILURE [None]
  - PULMONARY FUNCTION TEST DECREASED [None]
  - ABDOMINAL DISTENSION [None]
  - OEDEMA PERIPHERAL [None]
  - PULMONARY OEDEMA [None]
  - OBSTRUCTIVE AIRWAYS DISORDER [None]
  - DIABETIC MICROANGIOPATHY [None]
  - DIABETIC RETINOPATHY [None]
  - BLOOD GLUCOSE FLUCTUATION [None]
  - NEOVASCULARISATION [None]
  - SYSTOLIC DYSFUNCTION [None]
  - OEDEMA [None]
  - RENAL IMPAIRMENT [None]
  - MICROALBUMINURIA [None]
  - SCROTAL SWELLING [None]
  - MICTURITION DISORDER [None]
  - DYSPNOEA [None]
  - DILATATION VENTRICULAR [None]
  - DIZZINESS [None]
